FAERS Safety Report 4552437-8 (Version None)
Quarter: 2005Q1

REPORT INFORMATION
  Report Type: 
  Country: None (occurrence: None)
  Receive Date: 20050114
  Receipt Date: 20050103
  Transmission Date: 20050727
  Serious: Yes (Hospitalization)
  Sender: FDA-Public Use
  Company Number: US-ABBOTT-05P-163-0285120-00

PATIENT
  Sex: Male
  Weight: 72.186 kg

DRUGS (12)
  1. HUMIRA [Suspect]
     Indication: RHEUMATOID ARTHRITIS
     Route: 058
     Dates: start: 20030101
  2. FUROSEMIDE [Concomitant]
     Indication: OEDEMA PERIPHERAL
     Route: 048
  3. PREDNISONE [Concomitant]
     Indication: RHEUMATOID ARTHRITIS
     Route: 048
  4. ESOMEPRAZOLE [Concomitant]
     Indication: GASTROOESOPHAGEAL REFLUX DISEASE
     Route: 048
  5. ALLOPURINOL [Concomitant]
     Indication: GOUTY ARTHRITIS
     Route: 048
  6. SULINDAC [Concomitant]
     Indication: ARTHRITIS
     Route: 048
  7. ACETYLSALICYLIC ACID SRT [Concomitant]
     Indication: CARDIAC DISORDER
     Route: 048
  8. NORDASEC [Concomitant]
     Indication: CARDIAC DISORDER
     Route: 048
  9. ISOSORBIDE DINITRATE [Concomitant]
     Indication: CARDIAC DISORDER
     Route: 048
  10. ENALAPRIL MALEATE [Concomitant]
     Indication: BLOOD PRESSURE INCREASED
     Route: 048
  11. ATORVASTATIN [Concomitant]
     Indication: BLOOD CHOLESTEROL INCREASED
     Route: 048
  12. METOPROLOL TARTRATE [Concomitant]
     Indication: BLOOD PRESSURE INCREASED
     Route: 048

REACTIONS (2)
  - LOCALISED INFECTION [None]
  - SKIN DISCOLOURATION [None]
